FAERS Safety Report 12238851 (Version 1)
Quarter: 2016Q2

REPORT INFORMATION
  Report Type: Spontaneous
  Country: US (occurrence: US)
  Receive Date: 20160405
  Receipt Date: 20160405
  Transmission Date: 20160815
  Serious: Yes (Other)
  Sender: FDA-Public Use
  Company Number: US-MDT-ADR-2016-00628

PATIENT
  Age: 14 Year
  Sex: Male

DRUGS (8)
  1. NEURONTIN [Suspect]
     Active Substance: GABAPENTIN
  2. CLONIDINE. [Suspect]
     Active Substance: CLONIDINE
  3. PHENOBARBITAL. [Suspect]
     Active Substance: PHENOBARBITAL
  4. LIORESAL [Suspect]
     Active Substance: BACLOFEN
     Dosage: 760.2MCG/DAY
     Route: 037
  5. FLOVENT [Suspect]
     Active Substance: FLUTICASONE PROPIONATE
  6. VALIUM [Suspect]
     Active Substance: DIAZEPAM
  7. ALBUTEROL. [Suspect]
     Active Substance: ALBUTEROL
  8. KEPPRA [Suspect]
     Active Substance: LEVETIRACETAM

REACTIONS (2)
  - Wound dehiscence [Unknown]
  - Implant site infection [Unknown]

NARRATIVE: CASE EVENT DATE: 20160312
